FAERS Safety Report 12668261 (Version 1)
Quarter: 2016Q3

REPORT INFORMATION
  Report Type: Spontaneous
  Country: US (occurrence: US)
  Receive Date: 20160819
  Receipt Date: 20160819
  Transmission Date: 20161109
  Serious: Yes (Other)
  Sender: FDA-Public Use
  Company Number: US-BEUTLICH PHARMACEUTICALS, LLC-1056536

PATIENT
  Age: 3 Year
  Sex: Female
  Weight: 16.36 kg

DRUGS (2)
  1. HURRICAINE TOPICAL ANESTHETIC LIQUID [Suspect]
     Active Substance: BENZOCAINE
     Indication: TONSILLECTOMY
     Route: 048
     Dates: start: 20160804, end: 20160804
  2. HURRICAINE TOPICAL ANESTHETIC LIQUID [Suspect]
     Active Substance: BENZOCAINE
     Indication: PAIN
     Route: 048
     Dates: start: 20160804, end: 20160804

REACTIONS (3)
  - Cyanosis [None]
  - Methaemoglobinaemia [Recovered/Resolved]
  - Incorrect dose administered [None]

NARRATIVE: CASE EVENT DATE: 20160804
